FAERS Safety Report 12118066 (Version 1)
Quarter: 2016Q1

REPORT INFORMATION
  Report Type: Spontaneous
  Country: DE (occurrence: DE)
  Receive Date: 20160226
  Receipt Date: 20160226
  Transmission Date: 20160526
  Serious: Yes (Hospitalization)
  Sender: FDA-Public Use
  Company Number: DE-ACCORD-037943

PATIENT
  Age: 75 Year
  Sex: Female
  Weight: 75 kg

DRUGS (8)
  1. ZOLPIDEM [Concomitant]
     Active Substance: ZOLPIDEM\ZOLPIDEM TARTRATE
     Dosage: IN NIGHT
  2. ESCITALOPRAM HEUMANN [Concomitant]
     Dosage: STRENGTH: 5 MG?IN MORNING
  3. DEKRISTOL I.E. [Concomitant]
     Indication: VITAMIN D DEFICIENCY
     Dosage: STRENGTH: 1000
     Dates: start: 201601
  4. SALVIA OFFICINALIS [Concomitant]
     Indication: DIVERTICULUM INTESTINAL
     Dosage: SALVIA MOTHER TINCTURE?5 DROPS ORAL ON TONGUE
  5. QUETIAPINE AUROBINDO [Concomitant]
     Indication: DEPRESSION
     Dosage: STARTED ON 8 OR 9 NOV-2015
  6. MIRTAZAPINE. [Concomitant]
     Active Substance: MIRTAZAPINE
     Dosage: STRENGTH: 45 MG?IN NIGHT
  7. SIMVASTATIN. [Concomitant]
     Active Substance: SIMVASTATIN
     Dosage: STRENGTH: 20 MG?IN EVENING
  8. QUETIAPINE ACCORD [Suspect]
     Active Substance: QUETIAPINE
     Indication: DEPRESSION
     Dosage: STRENGTH (BATCH NO.): 300 MG (S08298)+200 MG (S06908)?1X300 MG+1X200 MG IN EVENING
     Route: 048
     Dates: start: 2009

REACTIONS (4)
  - Drug ineffective [Not Recovered/Not Resolved]
  - Gastritis [Recovered/Resolved]
  - Constipation [Not Recovered/Not Resolved]
  - Diverticulum [Not Recovered/Not Resolved]

NARRATIVE: CASE EVENT DATE: 201511
